FAERS Safety Report 14218643 (Version 1)
Quarter: 2017Q4

REPORT INFORMATION
  Report Type: Report from Study
  Country: PK (occurrence: PK)
  Receive Date: 20171123
  Receipt Date: 20171123
  Transmission Date: 20180321
  Serious: Yes (Other)
  Sender: FDA-Public Use
  Company Number: PHHY2017PK168794

PATIENT
  Age: 60 Year
  Sex: Female

DRUGS (2)
  1. EXFORGE HCT [Suspect]
     Active Substance: AMLODIPINE BESYLATE\HYDROCHLOROTHIAZIDE\VALSARTAN
     Indication: HYPERTENSION
     Dosage: 1 DF, (AMLODIPINE 10 MG, HYDROCHLOROTHIAZIDE 25 MG AND VALSARTAN 320 MG), QD
     Route: 048
     Dates: start: 20170928, end: 20171012
  2. EXFORGE [Suspect]
     Active Substance: AMLODIPINE BESYLATE\VALSARTAN
     Indication: PRODUCT USED FOR UNKNOWN INDICATION
     Dosage: 1 DF, (AMLODIPINE 5 MG AND VALSARTAN 160 MG), BID
     Route: 065
     Dates: start: 20171013

REACTIONS (2)
  - Inappropriate schedule of drug administration [Not Recovered/Not Resolved]
  - Blood sodium increased [Recovered/Resolved]

NARRATIVE: CASE EVENT DATE: 20171005
